FAERS Safety Report 7989049-X (Version None)
Quarter: 2011Q4

REPORT INFORMATION
  Report Type: 
  Country: None (occurrence: None)
  Receive Date: 20111219
  Receipt Date: 20111214
  Transmission Date: 20120403
  Serious: Yes (Death)
  Sender: FDA-Public Use
  Company Number: US-US-EMD SERONO, INC.-7100482

PATIENT
  Sex: Male
  Weight: 87 kg

DRUGS (3)
  1. REBIF [Suspect]
     Indication: MULTIPLE SCLEROSIS
     Route: 058
     Dates: start: 20090901
  2. KEPPRA [Concomitant]
     Dosage: ONE HALF DOSAGE FORM
     Dates: start: 20100119
  3. GABAPENTIN [Concomitant]

REACTIONS (1)
  - COMPLETED SUICIDE [None]
